FAERS Safety Report 9891503 (Version 1)
Quarter: 2014Q1

REPORT INFORMATION
  Report Type: Spontaneous
  Country: US (occurrence: None)
  Receive Date: 20140211
  Receipt Date: 20140211
  Transmission Date: 20141002
  Serious: Yes (Other)
  Sender: FDA-Public Use
  Company Number: None

PATIENT
  Age: 56 Year
  Sex: Male
  Weight: 69.5 kg

DRUGS (1)
  1. DACARBAZINE [Suspect]
     Indication: HODGKIN^S DISEASE
     Route: 042
     Dates: start: 20131004, end: 20131004

REACTIONS (5)
  - Chills [None]
  - Pyrexia [None]
  - Tachycardia [None]
  - Wheezing [None]
  - Investigation [None]
